FAERS Safety Report 7340020-0 (Version None)
Quarter: 2011Q1

REPORT INFORMATION
  Report Type: 
  Country: None (occurrence: None)
  Receive Date: 20110309
  Receipt Date: 20110307
  Transmission Date: 20110831
  Serious: Yes (Hospitalization)
  Sender: FDA-Public Use
  Company Number: JP-BRACCO-004427

PATIENT
  Sex: Female
  Weight: 48 kg

DRUGS (5)
  1. IOPAMIDOL [Suspect]
     Indication: SPLENOMEGALY
     Route: 042
     Dates: start: 20110105, end: 20110105
  2. CEREKINON [Concomitant]
     Route: 048
     Dates: end: 20110105
  3. IOPAMIDOL [Suspect]
     Indication: LYMPHOMA
     Route: 042
     Dates: start: 20110105, end: 20110105
  4. ZANTAC [Concomitant]
     Route: 048
     Dates: end: 20110105
  5. SELBEX [Concomitant]
     Route: 048
     Dates: end: 20110105

REACTIONS (2)
  - MUCOCUTANEOUS RASH [None]
  - OCULOMUCOCUTANEOUS SYNDROME [None]
